FAERS Safety Report 5796048-5 (Version None)
Quarter: 2008Q3

REPORT INFORMATION
  Report Type: 
  Country: None (occurrence: None)
  Receive Date: 20080701
  Receipt Date: 20080620
  Transmission Date: 20090109
  Serious: Yes (Hospitalization)
  Sender: FDA-Public Use
  Company Number: GB-JNJFOC-20080605465

PATIENT
  Age: 83 Year
  Sex: Male

DRUGS (1)
  1. RISPERDAL CONSTA [Suspect]
     Indication: MAJOR DEPRESSION
     Route: 030

REACTIONS (1)
  - DEEP VEIN THROMBOSIS [None]
